FAERS Safety Report 4515522-2 (Version None)
Quarter: 2004Q4

REPORT INFORMATION
  Report Type: 
  Country: None (occurrence: None)
  Receive Date: 20041201
  Receipt Date: 20041118
  Transmission Date: 20050328
  Serious: Yes (Hospitalization)
  Sender: FDA-Public Use
  Company Number: IT-ABBOTT-04P-083-0281025-00

PATIENT
  Sex: Female

DRUGS (5)
  1. KLACID [Suspect]
     Indication: BRONCHITIS
     Route: 048
     Dates: start: 20041023, end: 20041031
  2. KLACID [Suspect]
     Indication: BRONCHIOLITIS
  3. LEVOFLOXACINA [Suspect]
     Indication: BRONCHITIS
     Route: 048
     Dates: start: 20041008, end: 20041015
  4. LEVOFLOXACINA [Suspect]
     Indication: BRONCHIOLITIS
  5. ALIFLUS 25/125 MCG [Concomitant]
     Indication: ASTHMA
     Route: 055

REACTIONS (4)
  - ANAEMIA [None]
  - CLOSTRIDIUM COLITIS [None]
  - COLITIS ULCERATIVE [None]
  - ENTEROCOLITIS HAEMORRHAGIC [None]
